FAERS Safety Report 17007644 (Version 3)
Quarter: 2020Q2

REPORT INFORMATION
  Report Type: Report from Study
  Country: US (occurrence: US)
  Receive Date: 20191108
  Receipt Date: 20200518
  Transmission Date: 20200713
  Serious: Yes (Hospitalization, Other)
  Sender: FDA-Public Use
  Company Number: US-ROCHE-2456499

PATIENT
  Age: 43 Year
  Sex: Female
  Weight: 65.83 kg

DRUGS (6)
  1. OCREVUS [Suspect]
     Active Substance: OCRELIZUMAB
     Dosage: SECOND HALF DOSE
     Route: 042
     Dates: start: 20190925
  2. LEMTRADA [Concomitant]
     Active Substance: ALEMTUZUMAB
  3. OCREVUS [Suspect]
     Active Substance: OCRELIZUMAB
     Indication: RELAPSING-REMITTING MULTIPLE SCLEROSIS
     Dosage: FIRST HALF DOSE
     Route: 042
     Dates: start: 20190911
  4. KLONOPIN [Suspect]
     Active Substance: CLONAZEPAM
     Indication: RESTLESS LEGS SYNDROME
     Dosage: YES
     Route: 048
     Dates: start: 201908
  5. KLONOPIN [Suspect]
     Active Substance: CLONAZEPAM
     Dosage: ONGOING : NO
     Route: 048
     Dates: end: 201812
  6. KLONOPIN [Suspect]
     Active Substance: CLONAZEPAM
     Route: 048
     Dates: end: 201902

REACTIONS (7)
  - Hepatic enzyme abnormal [Unknown]
  - Meningitis [Recovered/Resolved]
  - Herpes zoster [Not Recovered/Not Resolved]
  - Multiple sclerosis relapse [Not Recovered/Not Resolved]
  - Urticaria [Unknown]
  - Hypertension [Not Recovered/Not Resolved]
  - Feeling abnormal [Recovered/Resolved]

NARRATIVE: CASE EVENT DATE: 20200318
